FAERS Safety Report 20963077 (Version 1)
Quarter: 2022Q2

REPORT INFORMATION
  Report Type: Spontaneous
  Country: US (occurrence: US)
  Receive Date: 20220615
  Receipt Date: 20220615
  Transmission Date: 20220720
  Serious: No
  Sender: FDA-Public Use
  Company Number: US-GILEAD-2022-0586045

PATIENT
  Age: 49 Year
  Sex: Male

DRUGS (3)
  1. AMBRISENTAN [Suspect]
     Active Substance: AMBRISENTAN
     Indication: Pulmonary arterial hypertension
     Dosage: UNK
     Route: 065
     Dates: end: 20220605
  2. TYVASO [Suspect]
     Active Substance: TREPROSTINIL
     Indication: Pulmonary arterial hypertension
     Dosage: 54 UG, QID, 9 BREATHS, 0.6 MG/ML
     Route: 055
     Dates: start: 20210805, end: 20220605
  3. OXYGEN [Concomitant]
     Active Substance: OXYGEN

REACTIONS (1)
  - Product dose omission issue [Not Recovered/Not Resolved]
